FAERS Safety Report 26042931 (Version 1)
Quarter: 2025Q4

REPORT INFORMATION
  Report Type: Spontaneous
  Country: US (occurrence: US)
  Receive Date: 20251113
  Receipt Date: 20251113
  Transmission Date: 20260118
  Serious: Yes (Other)
  Sender: NOVO NORDISK
  Company Number: US-NOVOPROD-1560556

PATIENT

DRUGS (1)
  1. PRANDIN [Suspect]
     Active Substance: REPAGLINIDE
     Indication: Diabetes mellitus
     Dosage: 2 MG

REACTIONS (2)
  - Neoplasm malignant [Unknown]
  - Spinal disorder [Unknown]
